FAERS Safety Report 16978158 (Version 6)
Quarter: 2020Q4

REPORT INFORMATION
  Report Type: Spontaneous
  Country: US (occurrence: US)
  Receive Date: 20191031
  Receipt Date: 20201029
  Transmission Date: 20210113
  Serious: No
  Sender: FDA-Public Use
  Company Number: US-BIOGEN-2019BI00802074

PATIENT
  Age: 56 Year
  Sex: Female

DRUGS (4)
  1. REBIF [Concomitant]
     Active Substance: INTERFERON BETA-1A
     Route: 065
  2. ALPRAZOLAM. [Concomitant]
     Active Substance: ALPRAZOLAM
     Route: 065
  3. TECFIDERA [Suspect]
     Active Substance: DIMETHYL FUMARATE
     Indication: MULTIPLE SCLEROSIS
     Route: 048
     Dates: start: 20191023
  4. TECFIDERA [Suspect]
     Active Substance: DIMETHYL FUMARATE
     Route: 065
     Dates: start: 20191119

REACTIONS (9)
  - Flushing [Recovered/Resolved]
  - Urticaria [Recovered/Resolved]
  - Hot flush [Recovered/Resolved]
  - Rash [Unknown]
  - Abdominal discomfort [Recovered/Resolved]
  - Vomiting [Recovered/Resolved]
  - Pain [Recovered/Resolved]
  - Malaise [Recovered/Resolved]
  - Diarrhoea [Unknown]

NARRATIVE: CASE EVENT DATE: 201910
